FAERS Safety Report 8915645 (Version 1)
Quarter: 2012Q4

REPORT INFORMATION
  Report Type: 
  Country: GB (occurrence: GB)
  Receive Date: 20121119
  Receipt Date: 20121119
  Transmission Date: 20130627
  Serious: Yes (Other)
  Sender: FDA-Public Use
  Company Number: GB-PERRIGO-12GB009907

PATIENT
  Age: 44 Year
  Sex: Female

DRUGS (2)
  1. NAPROXEN 250MG 16028/0144 [Suspect]
     Indication: ARTHRALGIA
     Dosage: 1 g, qd
     Route: 048
     Dates: start: 201210, end: 20121102
  2. CITALOPRAM [Concomitant]
     Indication: PRODUCT USED FOR UNKNOWN INDICATION
     Dosage: 40 mg, UNK
     Route: 048

REACTIONS (1)
  - Epistaxis [Recovering/Resolving]
